FAERS Safety Report 9376038 (Version 1)
Quarter: 2013Q2

REPORT INFORMATION
  Report Type: Spontaneous
  Country: GB (occurrence: GB)
  Receive Date: 20130629
  Receipt Date: 20130629
  Transmission Date: 20140414
  Serious: Yes (Other)
  Sender: FDA-Public Use
  Company Number: GB-009507513-1306GBR014014

PATIENT
  Age: 8 Month
  Sex: Female

DRUGS (1)
  1. TIMOPTOL-LA 0.25%W/V GEL-FORMING EYE DROPS SOLUTION [Suspect]
     Indication: HAEMANGIOMA
     Dosage: 1 DF, BID
     Route: 061
     Dates: start: 20130607, end: 20130614

REACTIONS (2)
  - Lower respiratory tract infection [Recovered/Resolved]
  - Sleep terror [Recovered/Resolved]
